FAERS Safety Report 7372693-0 (Version None)
Quarter: 2011Q1

REPORT INFORMATION
  Report Type: 
  Country: None (occurrence: None)
  Receive Date: 20110316
  Receipt Date: 20110311
  Transmission Date: 20110831
  Serious: Yes (Death, Hospitalization, Other)
  Sender: FDA-Public Use
  Company Number: 2011SP000433

PATIENT
  Age: 62 Year
  Sex: Male
  Weight: 101 kg

DRUGS (23)
  1. TAMSULOSIN HCL [Concomitant]
  2. LEUPROLIDE ACETATE [Concomitant]
  3. MS CONTIN [Concomitant]
  4. COLECALCIGEROL [Concomitant]
  5. INSULIN HUMAN INJECTION, ISOPHANE [Concomitant]
  6. INSULIN HUMAN [Concomitant]
  7. ASPIRIN [Concomitant]
  8. TYLOX [Concomitant]
  9. SENNA ALEXANDRINA [Concomitant]
  10. LACTULOSE [Concomitant]
  11. CENTRUM SILVER [Concomitant]
  12. ATENOLOL [Concomitant]
  13. MEGESTROL ACETATE [Concomitant]
  14. TEMOZOLOMIDE [Suspect]
     Indication: PROSTATE CANCER METASTATIC
     Dosage: PO
     Route: 048
     Dates: start: 20100810
  15. MEGESTROL ACETATE [Concomitant]
  16. IBUPROFEN [Concomitant]
  17. FUROSEMIDE [Concomitant]
  18. ZOLEDRONIC ACID [Concomitant]
  19. GLIPIZIDE [Concomitant]
  20. CORICIDIN [Concomitant]
  21. ABT-888 [Suspect]
     Indication: PROSTATE CANCER METASTATIC
     Dosage: 40 MG; BID; PO
     Route: 048
     Dates: start: 20100810, end: 20101108
  22. LOSARTAN POTASSIUM [Concomitant]
  23. LEKOVIT [Concomitant]

REACTIONS (23)
  - HAEMOPTYSIS [None]
  - PAIN IN JAW [None]
  - BLOOD GLUCOSE INCREASED [None]
  - GAIT DISTURBANCE [None]
  - METASTASES TO LUNG [None]
  - RESPIRATORY FAILURE [None]
  - ATELECTASIS [None]
  - ABDOMINAL PAIN [None]
  - PYREXIA [None]
  - THROMBOCYTOPENIA [None]
  - ANAEMIA [None]
  - METASTASES TO LIVER [None]
  - PRODUCTIVE COUGH [None]
  - HEPATIC FAILURE [None]
  - METASTASES TO SPINE [None]
  - HEPATORENAL SYNDROME [None]
  - EPISTAXIS [None]
  - COLD SWEAT [None]
  - OSTEOSCLEROSIS [None]
  - INFECTION [None]
  - PNEUMONIA [None]
  - DEHYDRATION [None]
  - OXYGEN SATURATION DECREASED [None]
